FAERS Safety Report 13911213 (Version 1)
Quarter: 2017Q3

REPORT INFORMATION
  Report Type: Spontaneous
  Country: IT (occurrence: IT)
  Receive Date: 20170828
  Receipt Date: 20170828
  Transmission Date: 20171127
  Serious: Yes (Other)
  Sender: FDA-Public Use
  Company Number: IT-JNJFOC-20170821706

PATIENT
  Age: 81 Year
  Sex: Male
  Weight: 63 kg

DRUGS (1)
  1. IBRUTINIB [Suspect]
     Active Substance: IBRUTINIB
     Indication: LEUKAEMIA
     Route: 048
     Dates: start: 20170721

REACTIONS (1)
  - Ecchymosis [Unknown]

NARRATIVE: CASE EVENT DATE: 20170818
